FAERS Safety Report 6245944-3 (Version None)
Quarter: 2009Q2

REPORT INFORMATION
  Report Type: 
  Country: None (occurrence: None)
  Receive Date: 20090626
  Receipt Date: 20080801
  Transmission Date: 20091009
  Serious: No
  Sender: FDA-Public Use
  Company Number: A0740917A

PATIENT
  Age: 36 Year
  Sex: Female

DRUGS (2)
  1. IMITREX [Suspect]
     Indication: MIGRAINE
     Dosage: 100MG SINGLE DOSE
     Route: 048
     Dates: start: 20080721, end: 20080721
  2. M.V.I. [Concomitant]

REACTIONS (2)
  - MYALGIA [None]
  - OROPHARYNGEAL PAIN [None]
